FAERS Safety Report 7292525-9 (Version None)
Quarter: 2011Q1

REPORT INFORMATION
  Report Type: 
  Country: None (occurrence: None)
  Receive Date: 20110215
  Receipt Date: 20101117
  Transmission Date: 20110831
  Serious: Yes (Other)
  Sender: FDA-Public Use
  Company Number: GB-RANBAXY-2009RR-28397

PATIENT
  Sex: Male

DRUGS (3)
  1. LERCANIDIPINE [Concomitant]
     Dosage: 10 MG, UNK
  2. ECCOXOLAC 300MG CAPSULES [Suspect]
     Indication: ARTHRALGIA
     Dosage: UNK MG, BID
     Route: 048
     Dates: end: 20090820
  3. EZETIMIBE [Concomitant]
     Dosage: 10 MG, UNK

REACTIONS (6)
  - LIP SWELLING [None]
  - SWELLING [None]
  - SWOLLEN TONGUE [None]
  - PRURITUS [None]
  - RASH ERYTHEMATOUS [None]
  - EYE SWELLING [None]
